FAERS Safety Report 18728052 (Version 4)
Quarter: 2024Q2

REPORT INFORMATION
  Report Type: Spontaneous
  Country: IT (occurrence: IT)
  Receive Date: 20210111
  Receipt Date: 20240411
  Transmission Date: 20240716
  Serious: Yes (Death, Hospitalization, Other)
  Sender: FDA-Public Use
  Company Number: IT-009507513-2101ITA001400

PATIENT
  Age: 42 Year
  Sex: Male

DRUGS (3)
  1. PEMBROLIZUMAB [Suspect]
     Active Substance: PEMBROLIZUMAB
     Indication: Thymoma
     Dosage: 2 MILLIGRAM/KILOGRAM, EVERY 21
     Route: 042
  2. MYCOPHENOLATE MOFETIL [Suspect]
     Active Substance: MYCOPHENOLATE MOFETIL
  3. ENTECAVIR [Suspect]
     Active Substance: ENTECAVIR

REACTIONS (5)
  - Immune-mediated hepatitis [Fatal]
  - Lymphocytosis [Recovered/Resolved]
  - Immune thrombocytopenia [Not Recovered/Not Resolved]
  - Immune-mediated thyroiditis [Unknown]
  - Off label use [Unknown]
